FAERS Safety Report 16744932 (Version 4)
Quarter: 2019Q4

REPORT INFORMATION
  Report Type: Report from Study
  Country: CO (occurrence: CO)
  Receive Date: 20190827
  Receipt Date: 20191001
  Transmission Date: 20200122
  Serious: Yes (Hospitalization)
  Sender: FDA-Public Use
  Company Number: CO-ACTELION-A-CH2019-188839

PATIENT
  Age: 51 Year
  Sex: Female
  Weight: 60 kg

DRUGS (3)
  1. INSULIN [Concomitant]
     Active Substance: INSULIN NOS
  2. OPSUMIT [Suspect]
     Active Substance: MACITENTAN
     Indication: PULMONARY ARTERIAL HYPERTENSION
     Dosage: 10 MG, QD
     Route: 048
     Dates: start: 20190402, end: 20190602
  3. OXYGEN. [Concomitant]
     Active Substance: OXYGEN

REACTIONS (22)
  - General physical health deterioration [Not Recovered/Not Resolved]
  - Epistaxis [Not Recovered/Not Resolved]
  - Dizziness [Not Recovered/Not Resolved]
  - Stress [Not Recovered/Not Resolved]
  - Malaise [Not Recovered/Not Resolved]
  - Apathy [Unknown]
  - Fatigue [Not Recovered/Not Resolved]
  - Dyspnoea [Not Recovered/Not Resolved]
  - Renal disorder [Not Recovered/Not Resolved]
  - Cardiac disorder [Not Recovered/Not Resolved]
  - Abdominal distension [Not Recovered/Not Resolved]
  - Diarrhoea [Not Recovered/Not Resolved]
  - Weight decreased [Not Recovered/Not Resolved]
  - Vomiting [Not Recovered/Not Resolved]
  - Frustration tolerance decreased [Not Recovered/Not Resolved]
  - Abdominal pain upper [Not Recovered/Not Resolved]
  - Toothache [Not Recovered/Not Resolved]
  - Breast pain [Not Recovered/Not Resolved]
  - Chest pain [Not Recovered/Not Resolved]
  - Ascites [Not Recovered/Not Resolved]
  - Anxiety [Not Recovered/Not Resolved]
  - Tension [Not Recovered/Not Resolved]

NARRATIVE: CASE EVENT DATE: 201904
